FAERS Safety Report 10994103 (Version 2)
Quarter: 2015Q2

REPORT INFORMATION
  Report Type: Spontaneous
  Country: JP (occurrence: JP)
  Receive Date: 20150407
  Receipt Date: 20150414
  Transmission Date: 20150821
  Serious: Yes (Hospitalization)
  Sender: FDA-Public Use
  Company Number: JP-ASTRAZENECA-2015SE31704

PATIENT
  Age: 84 Year
  Sex: Male

DRUGS (3)
  1. TEGRETOL [Concomitant]
     Active Substance: CARBAMAZEPINE
     Indication: CEREBRAL INFARCTION
     Route: 048
     Dates: start: 20080630, end: 20150220
  2. CRESTOR [Suspect]
     Active Substance: ROSUVASTATIN CALCIUM
     Indication: DYSLIPIDAEMIA
     Route: 048
     Dates: start: 20091002, end: 20150220
  3. PLAVIX [Concomitant]
     Active Substance: CLOPIDOGREL BISULFATE
     Indication: CEREBRAL INFARCTION
     Route: 048
     Dates: start: 20090622, end: 20150220

REACTIONS (2)
  - Pleurisy [Not Recovered/Not Resolved]
  - Intentional product misuse [Unknown]

NARRATIVE: CASE EVENT DATE: 20150220
